FAERS Safety Report 6835206-5 (Version None)
Quarter: 2010Q3

REPORT INFORMATION
  Report Type: 
  Country: None (occurrence: None)
  Receive Date: 20100713
  Receipt Date: 20100701
  Transmission Date: 20110219
  Serious: Yes (Hospitalization, Other)
  Sender: FDA-Public Use
  Company Number: US-SHIRE-ALL1-2010-03698

PATIENT

DRUGS (5)
  1. FOSRENOL [Suspect]
     Indication: RENAL FAILURE
     Dosage: 1000 MG, 3X/DAY:TID
     Route: 048
     Dates: start: 20100101, end: 20100501
  2. FOSRENOL [Suspect]
     Indication: HYPERPHOSPHATAEMIA
  3. NOVOLOG [Concomitant]
     Indication: DIABETES MELLITUS
     Dosage: UNK, 3X/DAY:TID
     Route: 058
     Dates: start: 20080101
  4. LANTUS                             /01483501/ [Concomitant]
     Indication: DIABETES MELLITUS
     Dosage: UNK, 1X/DAY:QD
     Route: 058
     Dates: start: 20080101
  5. COREG [Concomitant]
     Indication: CARDIAC DISORDER
     Dosage: 6.25 MG, 2X/DAY:BID
     Route: 048
     Dates: start: 19900101

REACTIONS (6)
  - ABDOMINAL PAIN UPPER [None]
  - CEREBROVASCULAR ACCIDENT [None]
  - HEPATIC CIRRHOSIS [None]
  - LOSS OF CONSCIOUSNESS [None]
  - NAUSEA [None]
  - VOMITING [None]
